FAERS Safety Report 5358062-3 (Version None)
Quarter: 2007Q2

REPORT INFORMATION
  Report Type: 
  Country: None (occurrence: None)
  Receive Date: 20070530
  Receipt Date: 20061030
  Transmission Date: 20071010
  Serious: Yes (Hospitalization)
  Sender: FDA-Public Use
  Company Number: US200606000950

PATIENT
  Age: 53 Year
  Sex: Female
  Weight: 99.8 kg

DRUGS (2)
  1. ZYPREXA [Suspect]
     Dosage: 2.5 MG
     Dates: start: 20010401, end: 20050501
  2. DIOVAN [Concomitant]

REACTIONS (4)
  - BLOOD CHOLESTEROL ABNORMAL [None]
  - CONVULSION [None]
  - DIABETES MELLITUS [None]
  - HYPERTENSION [None]
